FAERS Safety Report 6767841-7 (Version None)
Quarter: 2010Q2

REPORT INFORMATION
  Report Type: 
  Country: None (occurrence: None)
  Receive Date: 20100614
  Receipt Date: 20100608
  Transmission Date: 20101027
  Serious: Yes (Death)
  Sender: FDA-Public Use
  Company Number: PHHY2010US29816

PATIENT
  Sex: Male

DRUGS (6)
  1. FANAPT [Suspect]
     Indication: PSYCHOTIC DISORDER
     Dosage: 6 MG, BID
     Route: 048
  2. GEODON [Concomitant]
     Indication: PSYCHOTIC DISORDER
     Dosage: 60 MG BID; 80 MG BID
  3. CLONAZEPAM [Concomitant]
     Dosage: 2 MG, TID
  4. PAROXETINE [Concomitant]
     Dosage: 40 MG (ONE AND HALF DAILY)
  5. DIVALPROEX SODIUM [Concomitant]
     Dosage: 500 MG, QD
  6. DEPAKOTE [Concomitant]
     Indication: PSYCHOTIC DISORDER

REACTIONS (1)
  - CARDIAC ARREST [None]
